FAERS Safety Report 9507346 (Version 1)
Quarter: 2013Q1

REPORT INFORMATION
  Report Type: Spontaneous
  Country: US (occurrence: None)
  Receive Date: 20130305
  Receipt Date: 20130305
  Transmission Date: 20140127
  Serious: Yes (Other)
  Sender: FDA-Public Use
  Company Number: 163-21880-12050052

PATIENT
  Age: 75 Year
  Sex: Male
  Weight: 93.9 kg

DRUGS (6)
  1. REVLIMID (LENALIDOMIDE) (10 MILLIGRAM, CAPSULES) [Suspect]
     Indication: MYELODYSPLASTIC SYNDROME
     Route: 048
     Dates: start: 20120424, end: 20120430
  2. ACYCLOVIR (ACICLOVIR) (200 MILLIGRAM, CAPSULES) [Concomitant]
  3. VITAMIN B12 (CYANOCOBALMIN) (INJECTION) [Concomitant]
  4. MULTIVITAMINSS (MULTIVITAMINS) (TABLETS) [Concomitant]
  5. LEVOFLOXACIN (LEVOFLOXACIN)(500 MILLIGRAM, TABLETS) [Concomitant]
  6. NAPROXEN (NAPROXEN) (TABLETS) [Concomitant]

REACTIONS (1)
  - Pancytopenia [None]
